FAERS Safety Report 6648092-3 (Version None)
Quarter: 2010Q1

REPORT INFORMATION
  Report Type: 
  Country: None (occurrence: None)
  Receive Date: 20100324
  Receipt Date: 20100319
  Transmission Date: 20100710
  Serious: Yes (Other)
  Sender: FDA-Public Use
  Company Number: LB-SANOFI-AVENTIS-2010SA015285

PATIENT
  Age: 30 Year
  Sex: Female
  Weight: 59 kg

DRUGS (7)
  1. DOCETAXEL [Suspect]
     Route: 041
     Dates: start: 20100209, end: 20100209
  2. BLINDED THERAPY [Suspect]
     Route: 042
     Dates: start: 20100209, end: 20100209
  3. PRIMPERAN INJ [Concomitant]
  4. OMEPRAZOLE [Concomitant]
  5. BUSCOPAN [Concomitant]
  6. PERFALGAN [Concomitant]
  7. CODEINE SULFATE [Concomitant]

REACTIONS (3)
  - ABDOMINAL PAIN [None]
  - ABDOMINAL PAIN UPPER [None]
  - PANCREATITIS [None]
